FAERS Safety Report 4463165-1 (Version None)
Quarter: 2004Q3

REPORT INFORMATION
  Report Type: 
  Country: None (occurrence: None)
  Receive Date: 20040928
  Receipt Date: 20040913
  Transmission Date: 20050211
  Serious: No
  Sender: FDA-Public Use
  Company Number: 2004AC00308

PATIENT
  Age: 68 Year
  Sex: Female

DRUGS (9)
  1. PROPOFOL [Suspect]
     Indication: ANAESTHESIA
  2. GELOFUSIN [Suspect]
  3. MIDAZOLAM HCL [Concomitant]
  4. VECURONIUM BROMIDE [Concomitant]
  5. ISOFLURANE [Concomitant]
  6. BUPIVACAINE [Concomitant]
  7. FENTANYL [Concomitant]
  8. DOPAMINE HCL [Concomitant]
  9. IBUPROFEN [Concomitant]

REACTIONS (4)
  - ANAPHYLACTIC REACTION [None]
  - FIBRINOLYSIS [None]
  - FLUSHING [None]
  - HYPOTENSION [None]
